FAERS Safety Report 19965686 (Version 1)
Quarter: 2021Q4

REPORT INFORMATION
  Report Type: Report from Study
  Country: JP (occurrence: JP)
  Receive Date: 20211019
  Receipt Date: 20211019
  Transmission Date: 20220303
  Serious: Yes (Death)
  Sender: FDA-Public Use
  Company Number: JP-SAKK-2021SA033958AA

PATIENT
  Age: 72 Year
  Sex: Male
  Weight: 75 kg

DRUGS (14)
  1. ISATUXIMAB [Suspect]
     Active Substance: ISATUXIMAB
     Indication: Plasma cell myeloma
     Dosage: 10 MG/KG, QOW
     Route: 041
     Dates: start: 20201006, end: 20210112
  2. ISATUXIMAB [Suspect]
     Active Substance: ISATUXIMAB
     Dosage: 10 MG/KG, QW
     Route: 041
     Dates: start: 20200908, end: 20200929
  3. POMALYST [Concomitant]
     Active Substance: POMALIDOMIDE
     Indication: Plasma cell myeloma
     Dosage: DAILY DOSAGE: 4 MG
     Route: 065
     Dates: start: 20200908, end: 20200928
  4. POMALYST [Concomitant]
     Active Substance: POMALIDOMIDE
     Dosage: DAILY DOSAGE: 4 MG
     Route: 065
     Dates: start: 20201006, end: 20201026
  5. POMALYST [Concomitant]
     Active Substance: POMALIDOMIDE
     Dosage: DAILY DOSAGE: 4 MG
     Route: 065
     Dates: start: 20201103, end: 20201123
  6. POMALYST [Concomitant]
     Active Substance: POMALIDOMIDE
     Dosage: DAILY DOSAGE: 4 MG
     Route: 065
     Dates: start: 20201201, end: 20201214
  7. POMALYST [Concomitant]
     Active Substance: POMALIDOMIDE
     Dosage: DAILY DOSAGE: 3 MG
     Route: 065
     Dates: start: 20201215, end: 20201221
  8. POMALYST [Concomitant]
     Active Substance: POMALIDOMIDE
     Dosage: DAILY DOSAGE: 3 MG
     Route: 065
     Dates: start: 20201229, end: 20210201
  9. DEXAMETHASONE [Concomitant]
     Active Substance: DEXAMETHASONE
     Indication: Plasma cell myeloma
     Dosage: 40 MG, QW
     Route: 065
     Dates: start: 20200908, end: 20201124
  10. DEXAMETHASONE [Concomitant]
     Active Substance: DEXAMETHASONE
     Dosage: 20 MG, QW
     Route: 065
     Dates: start: 20201201, end: 20210112
  11. VALACYCLOVIR HYDROCHLORIDE [Concomitant]
     Active Substance: VALACYCLOVIR HYDROCHLORIDE
     Indication: Infection prophylaxis
     Dosage: DAILY DOSAGE: 500 MG
     Route: 065
     Dates: start: 20200908, end: 20210820
  12. FAMOTIDINE [Concomitant]
     Active Substance: FAMOTIDINE
     Indication: Infection prophylaxis
     Dosage: DAILY DOSAGE: 20 MG
     Route: 065
     Dates: start: 20200908, end: 20210820
  13. SULFAMETHOXAZOLE\TRIMETHOPRIM [Concomitant]
     Active Substance: SULFAMETHOXAZOLE\TRIMETHOPRIM
     Indication: Infection prophylaxis
     Dosage: DAILY DOSAGE: 1 TABLET
     Route: 048
     Dates: start: 20200908, end: 20210820
  14. ASPIRIN [Concomitant]
     Active Substance: ASPIRIN
     Indication: Thrombosis prophylaxis
     Dosage: DAILY DOSAGE: 100 MG
     Route: 048
     Dates: start: 20200908, end: 20210820

REACTIONS (1)
  - Disease progression [Fatal]
